FAERS Safety Report 14335606 (Version 1)
Quarter: 2017Q4

REPORT INFORMATION
  Report Type: Spontaneous
  Country: GB (occurrence: FR)
  Receive Date: 20171229
  Receipt Date: 20171229
  Transmission Date: 20180321
  Serious: Yes (Hospitalization)
  Sender: FDA-Public Use
  Company Number: FR-FRESENIUS KABI-FK201711428

PATIENT
  Age: 38 Year
  Sex: Female
  Weight: 47 kg

DRUGS (3)
  1. ROPIVACAINE (MANUFACTURER UNKNOWN) [Suspect]
     Active Substance: ROPIVACAINE
     Indication: GAIT DISTURBANCE
     Route: 058
     Dates: start: 20171107, end: 20171107
  2. ACUPAN [Suspect]
     Active Substance: NEFOPAM HYDROCHLORIDE
     Indication: GAIT DISTURBANCE
     Route: 058
     Dates: start: 20171107, end: 20171107
  3. THIOCOLCHICOSIDE [Suspect]
     Active Substance: THIOCOLCHICOSIDE
     Indication: GAIT DISTURBANCE
     Route: 058
     Dates: start: 20171107, end: 20171107

REACTIONS (2)
  - Idiopathic generalised epilepsy [Not Recovered/Not Resolved]
  - Product use issue [Not Recovered/Not Resolved]

NARRATIVE: CASE EVENT DATE: 20171107
